FAERS Safety Report 11249088 (Version 1)
Quarter: 2015Q3

REPORT INFORMATION
  Report Type: Spontaneous
  Country: US (occurrence: US)
  Receive Date: 20150708
  Receipt Date: 20150708
  Transmission Date: 20151125
  Serious: Yes (Hospitalization)
  Sender: FDA-Public Use
  Company Number: US-ELI_LILLY_AND_COMPANY-US200809003553

PATIENT
  Age: 66 Year
  Sex: Male
  Weight: 54 kg

DRUGS (9)
  1. ALIMTA [Suspect]
     Active Substance: PEMETREXED DISODIUM
     Indication: NON-SMALL CELL LUNG CANCER
     Dosage: 500 MG/M2, Q 21 D
     Route: 042
     Dates: start: 20070813
  2. FOLIC ACID. [Concomitant]
     Active Substance: FOLIC ACID
     Dosage: 1 MG, DAILY (1/D)
     Route: 048
     Dates: start: 20070807, end: 20071219
  3. ROXICODONE [Concomitant]
     Active Substance: OXYCODONE HYDROCHLORIDE
     Route: 048
     Dates: start: 20070521
  4. AVASTIN [Concomitant]
     Active Substance: BEVACIZUMAB
     Dosage: 893 MG, Q 21 D
     Dates: start: 20080802, end: 20080802
  5. AVASTIN [Concomitant]
     Active Substance: BEVACIZUMAB
     Indication: NON-SMALL CELL LUNG CANCER
     Dosage: 180 MG, Q 21 D
     Dates: start: 20070301, end: 20070801
  6. VITAMIN B12 [Concomitant]
     Active Substance: CYANOCOBALAMIN
     Dosage: 1000 UG, Q 12 W X 3 INJ
     Route: 030
     Dates: start: 20070808
  7. FENTANYL. [Concomitant]
     Active Substance: FENTANYL
     Dosage: 100 UG, Q 3 D
     Route: 061
     Dates: start: 20070521
  8. CORTICOSTEROID NOS [Concomitant]
     Active Substance: CORTICOSTEROID NOS
     Dosage: 8 MG, DAILY (1/D)
     Route: 048
     Dates: start: 20070808, end: 20071129
  9. MEGESTAT [Concomitant]
     Active Substance: MEGESTROL ACETATE
     Route: 048
     Dates: start: 20070513

REACTIONS (1)
  - Vomiting [Recovered/Resolved]

NARRATIVE: CASE EVENT DATE: 20070814
